FAERS Safety Report 10518701 (Version 1)
Quarter: 2014Q4

REPORT INFORMATION
  Report Type: Spontaneous
  Country: US (occurrence: None)
  Receive Date: 20141014
  Receipt Date: 20141014
  Transmission Date: 20150528
  Serious: Yes (Disabling, Other)
  Sender: FDA-Public Use
  Company Number: None

PATIENT
  Age: 80 Year
  Sex: Female
  Weight: 65.32 kg

DRUGS (22)
  1. EXFORGE [Concomitant]
     Active Substance: AMLODIPINE BESYLATE\VALSARTAN
  2. PRO AIR HFA [Concomitant]
  3. BOSWILLIA [Concomitant]
  4. VIT. D, FOLIC ACID, VIT. B - COMPLEX [Concomitant]
     Active Substance: FOLIC ACID\VITAMINS
  5. FISH OIL [Concomitant]
     Active Substance: FISH OIL
  6. FLAXSEED [Concomitant]
     Active Substance: FLAX SEED
  7. ALPRAZALAM (XANAX) [Concomitant]
  8. CHANCA PRIDRA [Concomitant]
  9. CALCITRIOL. [Suspect]
     Active Substance: CALCITRIOL
     Indication: HYPERPARATHYROIDISM
     Dosage: 0.25 MCG. CAP., 1 CAPSULE BY MOUTH ONCE A DAY, ONCE A DAY  - TOOK THEM H.S., PER OREM (P.O.)
     Route: 048
     Dates: start: 20140911, end: 20140915
  10. VIT. B-1 [Concomitant]
  11. CRANBERRY SQ CAP [Concomitant]
  12. HYDRALAZINE [Concomitant]
     Active Substance: HYDRALAZINE HYDROCHLORIDE
  13. LASIX [Concomitant]
     Active Substance: FUROSEMIDE
  14. COQ10 [Concomitant]
     Active Substance: UBIDECARENONE
  15. LUTEIN [Concomitant]
     Active Substance: LUTEIN
  16. CAF^S CLAW [Concomitant]
  17. CALCITRIOL. [Suspect]
     Active Substance: CALCITRIOL
     Indication: BLOOD PARATHYROID HORMONE INCREASED
     Dosage: 0.25 MCG. CAP., 1 CAPSULE BY MOUTH ONCE A DAY, ONCE A DAY  - TOOK THEM H.S., PER OREM (P.O.)
     Route: 048
     Dates: start: 20140911, end: 20140915
  18. PREVACID [Concomitant]
     Active Substance: LANSOPRAZOLE
  19. VIT. C. [Concomitant]
  20. VITAMIN B COMPLEX [Concomitant]
     Active Substance: CYANOCOBALAMIN\DEXPANTHENOL\NIACINAMIDE\PYRIDOXINE HYDROCHLORIDE\RIBOFLAVIN 5^-PHOSPHATE SODIUM\THIAMINE HYDROCHLORIDE\VITAMIN B COMPLEX
  21. VIT. E [Concomitant]
  22. ZINC [Concomitant]
     Active Substance: ZINC\ZINC CHLORIDE

REACTIONS (18)
  - Arthralgia [None]
  - Eye pain [None]
  - Urine output decreased [None]
  - Dyspnoea [None]
  - Constipation [None]
  - Back pain [None]
  - Bone pain [None]
  - Headache [None]
  - Nausea [None]
  - Asthenia [None]
  - Myalgia [None]
  - Somnolence [None]
  - Abdominal pain upper [None]
  - Abdominal pain [None]
  - Flatulence [None]
  - Decreased appetite [None]
  - Malaise [None]
  - Abdominal distension [None]

NARRATIVE: CASE EVENT DATE: 20140911
